FAERS Safety Report 8257051-9 (Version None)
Quarter: 2012Q1

REPORT INFORMATION
  Report Type: 
  Country: None (occurrence: None)
  Receive Date: 20120330
  Receipt Date: 20120330
  Transmission Date: 20120608
  Serious: No
  Sender: FDA-Public Use
  Company Number: None

PATIENT
  Sex: Male

DRUGS (1)
  1. SERTRALINE HYDROCHLORIDE [Suspect]
     Indication: ANXIETY DISORDER
     Dosage: 50MG DAILY ORAL 12 UNTIL THE FIRST WEEK OF 3/12
     Route: 048

REACTIONS (1)
  - DYSKINESIA [None]
